FAERS Safety Report 9538221 (Version 1)
Quarter: 2013Q3

REPORT INFORMATION
  Report Type: Report from Study
  Country: SE (occurrence: SE)
  Receive Date: 20130920
  Receipt Date: 20130920
  Transmission Date: 20140515
  Serious: Yes (Hospitalization)
  Sender: FDA-Public Use
  Company Number: SE-ROCHE-1277271

PATIENT
  Age: 69 Year
  Sex: Male

DRUGS (6)
  1. CAPECITABINE [Suspect]
     Indication: GASTRIC CANCER
     Dosage: MOST RECENT DOSE ON 11/JUL/2013, BID FOR 2 WEEKS AND BID 5 X PER WEEK, 5 WEEKS.
     Route: 048
     Dates: start: 20130503
  2. OXALIPLATIN [Suspect]
     Indication: GASTRIC CANCER
     Dosage: MOST RECENT DOSE ON 20/JUN/2013, Q3W FOR 5 WEEKS
     Route: 042
     Dates: start: 20130503
  3. EPIRUBICIN [Suspect]
     Indication: GASTRIC CANCER
     Dosage: MOST RECENT DOSE ON 20/JUN/2013
     Route: 042
     Dates: start: 20130503
  4. DALTEPARINNATRIUM [Concomitant]
     Dosage: 18000 E X 1
     Route: 065
     Dates: start: 20130901
  5. ENALAPRIL [Concomitant]
     Route: 065
     Dates: start: 20130825
  6. OMEPRAZOLE [Concomitant]
     Dosage: 20-40 MG
     Route: 065
     Dates: start: 20130522

REACTIONS (1)
  - Pneumonia aspiration [Recovered/Resolved]
